FAERS Safety Report 21854861 (Version 2)
Quarter: 2023Q1

REPORT INFORMATION
  Report Type: Spontaneous
  Country: US (occurrence: US)
  Receive Date: 20230112
  Receipt Date: 20230115
  Transmission Date: 20230418
  Serious: Yes (Hospitalization)
  Sender: FDA-Public Use
  Company Number: US-PRINSTON PHARMACEUTICAL INC.-2023PRN00001

PATIENT
  Age: 91 Year
  Sex: Female

DRUGS (17)
  1. DOXYCYCLINE HYCLATE [Suspect]
     Active Substance: DOXYCYCLINE HYCLATE
     Indication: Staphylococcal bacteraemia
     Dosage: 100 MG, 2X/DAY
  2. DOXYCYCLINE HYCLATE [Suspect]
     Active Substance: DOXYCYCLINE HYCLATE
     Indication: Enterobacter infection
  3. ACETAMINOPHEN [Concomitant]
     Active Substance: ACETAMINOPHEN
  4. BISACODYL [Concomitant]
     Active Substance: BISACODYL
  5. BUMETANIDE [Concomitant]
     Active Substance: BUMETANIDE
  6. DIGOXIN [Concomitant]
     Active Substance: DIGOXIN
  7. DOCUSATE SODIUM [Concomitant]
     Active Substance: DOCUSATE SODIUM
  8. GABAPENTIN [Concomitant]
     Active Substance: GABAPENTIN
  9. ISOSORBIDE DINITRATE [Concomitant]
     Active Substance: ISOSORBIDE DINITRATE
  10. LEVOFLOXACIN [Concomitant]
     Active Substance: LEVOFLOXACIN
  11. METOPROLOL TARTRATE [Concomitant]
     Active Substance: METOPROLOL TARTRATE
  12. PANTOPRAZOLE [Concomitant]
     Active Substance: PANTOPRAZOLE
  13. RIVAROXABAN [Concomitant]
     Active Substance: RIVAROXABAN
  14. SENNA [Concomitant]
     Active Substance: SENNA LEAF\SENNOSIDES\SENNOSIDES A AND B
  15. SERTRALINE [Concomitant]
     Active Substance: SERTRALINE HYDROCHLORIDE
  16. SIMVASTATIN [Concomitant]
     Active Substance: SIMVASTATIN
  17. TRAMADOL [Concomitant]
     Active Substance: TRAMADOL

REACTIONS (3)
  - Hypovolaemic shock [Recovered/Resolved]
  - Confusional state [Recovered/Resolved]
  - Pancreatitis acute [Recovered/Resolved]
